FAERS Safety Report 8116792-4 (Version None)
Quarter: 2012Q1

REPORT INFORMATION
  Report Type: 
  Country: None (occurrence: None)
  Receive Date: 20120206
  Receipt Date: 20120131
  Transmission Date: 20120608
  Serious: Yes (Death)
  Sender: FDA-Public Use
  Company Number: PHHY2010US63185

PATIENT
  Sex: Male

DRUGS (8)
  1. OXYCODONE HCL [Concomitant]
     Dosage: 15 MG, PRN
     Route: 048
  2. GLEEVEC [Suspect]
     Dosage: 400 MG, QD
     Route: 048
     Dates: start: 20100801, end: 20110901
  3. LISINOPRIL [Concomitant]
     Dosage: 25 MG, DAILY
  4. MORPHINE [Concomitant]
     Dosage: 60 MG, BID
  5. GLEEVEC [Suspect]
     Indication: MALIGNANT MELANOMA
     Dosage: 400 MG, QD
     Route: 048
     Dates: start: 20100601, end: 20100831
  6. METOPROLOL [Concomitant]
     Dosage: 25 MG, DAILY
  7. FAMOTIDINE [Concomitant]
     Dosage: 20 MG, DAILY
  8. SIMVASTATIN [Concomitant]
     Dosage: 80 MG, DAILY

REACTIONS (3)
  - NEOPLASM PROGRESSION [None]
  - NEOPLASM MALIGNANT [None]
  - FATIGUE [None]
